FAERS Safety Report 5603878-9 (Version None)
Quarter: 2008Q1

REPORT INFORMATION
  Report Type: 
  Country: None (occurrence: None)
  Receive Date: 20080125
  Receipt Date: 20080125
  Transmission Date: 20080703
  Serious: Yes (Hospitalization)
  Sender: FDA-Public Use
  Company Number: None

PATIENT
  Sex: Female
  Weight: 92.4 kg

DRUGS (12)
  1. DOCETAXEL [Suspect]
     Indication: BREAST CANCER
     Dosage: 100MG/M2 X3, 75MG/M2 ONCE Q 3 WKS X4 IV
     Route: 042
     Dates: start: 20080108
  2. NOV-002 (IV BOLUS DAY 1 X 4 CYCLES, SQ DAILY X20DYS) [Suspect]
     Dosage: 60MG DAILY 21 DAYS IV / SQ
     Route: 042
     Dates: start: 20080109, end: 20080122
  3. ZOFRAN [Concomitant]
  4. MS CONTIN [Concomitant]
  5. LORTAB [Concomitant]
  6. SENOKOT [Concomitant]
  7. PREVACID [Concomitant]
  8. EMEND TRI PACK [Concomitant]
  9. PROMETHAZINE [Concomitant]
  10. RESTORIL [Concomitant]
  11. COMPAZINE [Concomitant]
  12. DEXAMETHASONE TAB [Concomitant]

REACTIONS (10)
  - CONSTIPATION [None]
  - COUGH [None]
  - DECREASED APPETITE [None]
  - DEEP VEIN THROMBOSIS [None]
  - HEADACHE [None]
  - NAUSEA [None]
  - NEUROPATHY PERIPHERAL [None]
  - PURULENCE [None]
  - VOMITING [None]
  - WOUND SECRETION [None]
